FAERS Safety Report 20699207 (Version 1)
Quarter: 2022Q2

REPORT INFORMATION
  Report Type: Other
  Country: None (occurrence: LK)
  Receive Date: 20220412
  Receipt Date: 20220412
  Transmission Date: 20220721
  Serious: Yes (Hospitalization, Other)
  Sender: FDA-Public Use
  Company Number: LK-Ajanta Pharma USA Inc.-2127623

PATIENT
  Age: 16 Year
  Sex: Female

DRUGS (1)
  1. RISPERIDONE [Suspect]
     Active Substance: RISPERIDONE
     Indication: Depressive symptom

REACTIONS (2)
  - Neuroleptic malignant syndrome [Recovered/Resolved]
  - Brain oedema [Unknown]
